FAERS Safety Report 17402964 (Version 1)
Quarter: 2020Q1

REPORT INFORMATION
  Report Type: Spontaneous
  Country: US (occurrence: US)
  Receive Date: 20200211
  Receipt Date: 20200211
  Transmission Date: 20200409
  Serious: Yes (Other)
  Sender: FDA-Public Use
  Company Number: US-HIKMA PHARMACEUTICALS USA INC.-US-H14001-20-00488

PATIENT
  Age: 66 Year
  Sex: Female

DRUGS (30)
  1. JAKAFI [Suspect]
     Active Substance: RUXOLITINIB
     Indication: MYELOFIBROSIS
     Route: 048
     Dates: start: 20170820
  2. JAKAFI [Suspect]
     Active Substance: RUXOLITINIB
     Route: 048
     Dates: start: 201709
  3. JAKAFI [Suspect]
     Active Substance: RUXOLITINIB
     Route: 048
     Dates: start: 20171004
  4. PROTONIX [Suspect]
     Active Substance: PANTOPRAZOLE SODIUM
     Indication: PRODUCT USED FOR UNKNOWN INDICATION
     Route: 065
  5. ASPIRIN. [Suspect]
     Active Substance: ASPIRIN
     Indication: PRODUCT USED FOR UNKNOWN INDICATION
     Route: 065
     Dates: end: 201802
  6. ASPIRIN. [Suspect]
     Active Substance: ASPIRIN
     Route: 065
     Dates: end: 201801
  7. PANTOPRAZOLE SODIUM. [Concomitant]
     Active Substance: PANTOPRAZOLE SODIUM
     Indication: PRODUCT USED FOR UNKNOWN INDICATION
     Route: 065
  8. PROTONIX [Suspect]
     Active Substance: PANTOPRAZOLE SODIUM
     Route: 065
  9. ASPIRIN. [Suspect]
     Active Substance: ASPIRIN
     Route: 065
     Dates: end: 201812
  10. CARAFATE [Suspect]
     Active Substance: SUCRALFATE
     Indication: GASTRIC ULCER
     Route: 065
  11. DIPHENOXYLATE [Concomitant]
     Active Substance: DIPHENOXYLATE
     Indication: DIARRHOEA
     Route: 065
  12. JAKAFI [Suspect]
     Active Substance: RUXOLITINIB
     Route: 048
     Dates: start: 201712
  13. VITAMIN B COMPLEX [Concomitant]
     Active Substance: CYANOCOBALAMIN\DEXPANTHENOL\NIACINAMIDE\PYRIDOXINE HYDROCHLORIDE\RIBOFLAVIN 5^-PHOSPHATE SODIUM\THIAMINE HYDROCHLORIDE\VITAMIN B COMPLEX
     Indication: PRODUCT USED FOR UNKNOWN INDICATION
     Route: 065
  14. JAKAFI [Suspect]
     Active Substance: RUXOLITINIB
     Route: 048
  15. JAKAFI [Suspect]
     Active Substance: RUXOLITINIB
     Route: 065
  16. PREDNISONE. [Suspect]
     Active Substance: PREDNISONE
     Indication: PRODUCT USED FOR UNKNOWN INDICATION
     Route: 065
  17. JAKAFI [Suspect]
     Active Substance: RUXOLITINIB
     Route: 048
  18. JAKAFI [Suspect]
     Active Substance: RUXOLITINIB
     Route: 048
  19. JAKAFI [Suspect]
     Active Substance: RUXOLITINIB
     Route: 048
  20. CYTOTEC [Concomitant]
     Active Substance: MISOPROSTOL
     Indication: PRODUCT USED FOR UNKNOWN INDICATION
     Route: 065
  21. METOPROLOL TARTRATE. [Concomitant]
     Active Substance: METOPROLOL TARTRATE
     Indication: PRODUCT USED FOR UNKNOWN INDICATION
     Route: 065
  22. MULTIVITAMIN [Concomitant]
     Active Substance: VITAMINS
     Indication: PRODUCT USED FOR UNKNOWN INDICATION
     Route: 065
  23. LOMOTIL [Concomitant]
     Active Substance: ATROPINE SULFATE\DIPHENOXYLATE HYDROCHLORIDE
     Indication: DIARRHOEA
     Route: 065
  24. JAKAFI [Suspect]
     Active Substance: RUXOLITINIB
     Route: 065
  25. JAKAFI [Suspect]
     Active Substance: RUXOLITINIB
     Route: 048
  26. JAKAFI [Suspect]
     Active Substance: RUXOLITINIB
     Route: 048
  27. FIBER [Concomitant]
     Active Substance: PSYLLIUM HUSK
     Indication: PRODUCT USED FOR UNKNOWN INDICATION
     Route: 065
  28. METOPROLOL. [Concomitant]
     Active Substance: METOPROLOL
     Indication: PRODUCT USED FOR UNKNOWN INDICATION
     Route: 065
  29. IMODIUM [Concomitant]
     Active Substance: LOPERAMIDE HYDROCHLORIDE
     Indication: DIARRHOEA
     Route: 065
  30. JAKAFI [Suspect]
     Active Substance: RUXOLITINIB
     Route: 048

REACTIONS (60)
  - Sluggishness [Not Recovered/Not Resolved]
  - Platelet count decreased [Recovering/Resolving]
  - White blood cell count decreased [Recovering/Resolving]
  - Cataract [Unknown]
  - Hyperhidrosis [Unknown]
  - Night sweats [Recovering/Resolving]
  - Feeling abnormal [Unknown]
  - Paraesthesia [Unknown]
  - Drug hypersensitivity [Unknown]
  - Abdominal pain upper [Unknown]
  - Fatigue [Recovered/Resolved]
  - Headache [Recovered/Resolved]
  - Peptic ulcer [Unknown]
  - Gingival bleeding [Unknown]
  - Hypersomnia [Unknown]
  - Sinusitis [Unknown]
  - Drug interaction [Unknown]
  - Weight increased [Unknown]
  - Contusion [Recovered/Resolved]
  - Energy increased [Unknown]
  - Myelofibrosis [Unknown]
  - Dyspepsia [Unknown]
  - Weight decreased [Recovering/Resolving]
  - Influenza like illness [Unknown]
  - Somnolence [Not Recovered/Not Resolved]
  - Increased appetite [Unknown]
  - Decreased activity [Unknown]
  - Hypoaesthesia [Unknown]
  - Therapeutic response unexpected [Unknown]
  - Ocular hyperaemia [Unknown]
  - Bronchitis [Recovering/Resolving]
  - Dyspnoea [Unknown]
  - Abdominal pain [Recovered/Resolved]
  - Haematocrit decreased [Unknown]
  - Asthenia [Unknown]
  - Gastric ulcer haemorrhage [Unknown]
  - Erythema [Unknown]
  - Pain in extremity [Unknown]
  - Pancreatic disorder [Unknown]
  - Gastrointestinal disorder [Recovered/Resolved]
  - Haemoglobin decreased [Recovering/Resolving]
  - Increased tendency to bruise [Unknown]
  - Back disorder [Not Recovered/Not Resolved]
  - Chest pain [Unknown]
  - Red blood cell count decreased [Recovering/Resolving]
  - Splenomegaly [Not Recovered/Not Resolved]
  - Hypertension [Unknown]
  - Hot flush [Unknown]
  - Sleep disorder [Recovered/Resolved]
  - Gastric disorder [Unknown]
  - Liver disorder [Unknown]
  - Abdominal discomfort [Unknown]
  - Pruritus [Unknown]
  - Dizziness [Not Recovered/Not Resolved]
  - Hepatomegaly [Unknown]
  - Dry skin [Unknown]
  - Malaise [Unknown]
  - Oral herpes [Unknown]
  - Diarrhoea [Recovered/Resolved]
  - Cough [Unknown]

NARRATIVE: CASE EVENT DATE: 201708
